FAERS Safety Report 17164742 (Version 1)
Quarter: 2019Q4

REPORT INFORMATION
  Report Type: Spontaneous
  Country: US (occurrence: US)
  Receive Date: 20191217
  Receipt Date: 20191217
  Transmission Date: 20200122
  Serious: Yes (Other)
  Sender: FDA-Public Use
  Company Number: US-AKRON, INC.-2077896

PATIENT
  Age: 61 Year
  Sex: Female

DRUGS (1)
  1. DORZOLAMIDE HCL-TIMOLOL MALEATE OPHTHALMIC SOLUTION [Suspect]
     Active Substance: DORZOLAMIDE HYDROCHLORIDE\TIMOLOL MALEATE

REACTIONS (12)
  - Rash [Unknown]
  - Blood pressure increased [None]
  - Migraine [Unknown]
  - Pollakiuria [None]
  - Diarrhoea [None]
  - Hypoaesthesia [Unknown]
  - Hypoaesthesia [Recovered/Resolved]
  - Pyrexia [None]
  - Chills [None]
  - Palpitations [None]
  - Hemiparesis [None]
  - Somnolence [Unknown]
